FAERS Safety Report 5325005-8 (Version None)
Quarter: 2007Q2

REPORT INFORMATION
  Report Type: 
  Country: None (occurrence: None)
  Receive Date: 20070515
  Receipt Date: 20070504
  Transmission Date: 20071010
  Serious: Yes (Other)
  Sender: FDA-Public Use
  Company Number: US-JNJFOC-20070501862

PATIENT
  Sex: Female
  Weight: 74.84 kg

DRUGS (2)
  1. DURAGESIC-100 [Suspect]
     Indication: PAIN
     Dosage: 100 UG/HR AND 50 UG/HR
     Route: 062
  2. PREVACID [Concomitant]
     Route: 048

REACTIONS (3)
  - ANKLE FRACTURE [None]
  - ENZYME ABNORMALITY [None]
  - MULTIPLE SCLEROSIS [None]
